FAERS Safety Report 20942064 (Version 1)
Quarter: 2022Q2

REPORT INFORMATION
  Report Type: Spontaneous
  Country: BR (occurrence: None)
  Receive Date: 20220610
  Receipt Date: 20220610
  Transmission Date: 20220721
  Serious: Yes (Other)
  Sender: FDA-Public Use
  Company Number: BR-ROCHE-3112770

PATIENT
  Age: 60 Year
  Sex: Male
  Weight: 75.7 kg

DRUGS (1)
  1. ATEZOLIZUMAB [Suspect]
     Active Substance: ATEZOLIZUMAB
     Indication: Lung neoplasm malignant
     Route: 065
     Dates: start: 20200716, end: 20200716

REACTIONS (3)
  - Flushing [Recovered/Resolved]
  - Hot flush [Unknown]
  - Malaise [Unknown]

NARRATIVE: CASE EVENT DATE: 20200716
